FAERS Safety Report 9372564 (Version 1)
Quarter: 2013Q2

REPORT INFORMATION
  Report Type: Spontaneous
  Country: RU (occurrence: RU)
  Receive Date: 20130627
  Receipt Date: 20130627
  Transmission Date: 20140414
  Serious: Yes (Other)
  Sender: FDA-Public Use
  Company Number: RU-PFIZER INC-2013188331

PATIENT
  Sex: Male

DRUGS (3)
  1. LYRICA [Suspect]
     Dosage: 0.15 G 2X/DAY (MORNING AND EVENING INTAKE)
  2. LYRICA [Suspect]
     Dosage: 0.3 G, SINGLE
  3. ZOPICLONE [Suspect]
     Dosage: 0.007 G, 1X/DAY, BEFORE NIGHT

REACTIONS (10)
  - Drug dependence [Recovered/Resolved]
  - Drug abuse [Unknown]
  - Euphoric mood [Unknown]
  - Withdrawal syndrome [Recovered/Resolved]
  - Anxiety [Recovered/Resolved]
  - Agitation [Recovered/Resolved]
  - Restlessness [Recovered/Resolved]
  - Depressed mood [Recovered/Resolved]
  - Sleep disorder [Recovered/Resolved]
  - Libido decreased [Unknown]
